FAERS Safety Report 6019372-X (Version None)
Quarter: 2008Q4

REPORT INFORMATION
  Report Type: 
  Country: None (occurrence: None)
  Receive Date: 20081224
  Receipt Date: 20081215
  Transmission Date: 20090506
  Serious: No
  Sender: FDA-Public Use
  Company Number: US-JNJFOC-20081204304

PATIENT
  Sex: Male
  Weight: 92.08 kg

DRUGS (2)
  1. DURAGESIC-100 [Suspect]
     Indication: BACK PAIN
     Route: 062
  2. ULTRAM [Suspect]
     Indication: PAIN
     Route: 048

REACTIONS (4)
  - BLOOD GLUCOSE INCREASED [None]
  - DRUG DOSE OMISSION [None]
  - HYPERTENSION [None]
  - WITHDRAWAL SYNDROME [None]
